FAERS Safety Report 5499648-5 (Version None)
Quarter: 2007Q4

REPORT INFORMATION
  Report Type: 
  Country: None (occurrence: None)
  Receive Date: 20071026
  Receipt Date: 20071015
  Transmission Date: 20080405
  Serious: Yes (Other)
  Sender: FDA-Public Use
  Company Number: US-PFIZER INC-2005033141

PATIENT
  Age: 42 Year
  Sex: Male
  Weight: 88 kg

DRUGS (3)
  1. DILANTIN [Suspect]
     Indication: CONVULSION
     Route: 048
  2. FLONASE [Concomitant]
     Indication: MULTIPLE ALLERGIES
     Route: 065
  3. BENADRYL [Concomitant]
     Indication: MULTIPLE ALLERGIES
     Route: 065

REACTIONS (9)
  - CONVULSION [None]
  - DEPRESSED MOOD [None]
  - DIZZINESS [None]
  - FEELING ABNORMAL [None]
  - HAEMORRHAGE [None]
  - INFLUENZA [None]
  - INSOMNIA [None]
  - NERVOUSNESS [None]
  - STRESS [None]
